FAERS Safety Report 12139684 (Version 1)
Quarter: 2016Q1

REPORT INFORMATION
  Report Type: Spontaneous
  Country: US (occurrence: None)
  Receive Date: 20160302
  Receipt Date: 20160302
  Transmission Date: 20160526
  Serious: Yes (Life-Threatening)
  Sender: FDA-Public Use
  Company Number: None

PATIENT
  Age: 14 Year
  Sex: Female
  Weight: 38.5 kg

DRUGS (4)
  1. PREDNISONE. [Concomitant]
     Active Substance: PREDNISONE
  2. PEGASPARGASE [Suspect]
     Active Substance: PEGASPARGASE
     Indication: ACUTE LYMPHOCYTIC LEUKAEMIA
     Dosage: 2500 UNITS/M2 = 3500 UNITS ONCE INTRAVENOUS
     Route: 042
     Dates: start: 20160122, end: 20160122
  3. IT METHROTREXATE DAUNORUBICIN [Concomitant]
  4. CYCLOPHOSPHAMIDE. [Concomitant]
     Active Substance: CYCLOPHOSPHAMIDE

REACTIONS (11)
  - Pancreatitis [None]
  - Amylase increased [None]
  - Lipase increased [None]
  - Systemic inflammatory response syndrome [None]
  - Pleural effusion [None]
  - Proteinuria [None]
  - Coagulopathy [None]
  - Blood bilirubin increased [None]
  - Tachycardia [None]
  - Haemodynamic instability [None]
  - Hyponatraemia [None]

NARRATIVE: CASE EVENT DATE: 20160204
